FAERS Safety Report 14612322 (Version 1)
Quarter: 2018Q1

REPORT INFORMATION
  Report Type: Spontaneous
  Country: US (occurrence: US)
  Receive Date: 20180307
  Receipt Date: 20180307
  Transmission Date: 20180509
  Serious: Yes (Other)
  Sender: FDA-Public Use
  Company Number: None

PATIENT
  Age: 10 Year
  Sex: Male
  Weight: 28.8 kg

DRUGS (5)
  1. CALCIUM CITRATE + MAGNESIUM AND MINERALS [Concomitant]
  2. OMEGA 3 FISH OIL [Concomitant]
     Active Substance: FISH OIL\OMEGA-3 FATTY ACIDS
  3. CITRACAL +D3 [Concomitant]
  4. METHYLPHENIDATE ER [Suspect]
     Active Substance: METHYLPHENIDATE
     Indication: ATTENTION DEFICIT/HYPERACTIVITY DISORDER
     Dosage: ?          QUANTITY:30 TABLET(S);?
     Route: 048
     Dates: start: 20180215, end: 20180305
  5. MELATONIN [Concomitant]
     Active Substance: MELATONIN

REACTIONS (10)
  - Impulse-control disorder [None]
  - Initial insomnia [None]
  - Logorrhoea [None]
  - Product substitution issue [None]
  - Crying [None]
  - Drug ineffective [None]
  - Frustration tolerance decreased [None]
  - Disturbance in attention [None]
  - Stress [None]
  - Affect lability [None]

NARRATIVE: CASE EVENT DATE: 20180215
